FAERS Safety Report 23744572 (Version 1)
Quarter: 2024Q2

REPORT INFORMATION
  Report Type: Report from Study
  Country: ZA (occurrence: ZA)
  Receive Date: 20240415
  Receipt Date: 20240415
  Transmission Date: 20240716
  Serious: Yes (Hospitalization)
  Sender: FDA-Public Use
  Company Number: ZA-ASTELLAS-2024US011001

PATIENT
  Age: 63 Year
  Sex: Female

DRUGS (3)
  1. MIRABEGRON [Suspect]
     Active Substance: MIRABEGRON
     Indication: Product used for unknown indication
     Route: 048
     Dates: start: 20240318
  2. CICLOVENT [Concomitant]
     Indication: Asthma
     Dosage: 160 ?G, ONCE DAILY, (160 MCG,1 PUFF BD)
     Route: 065
  3. LEVOTHYROXINE [Concomitant]
     Active Substance: LEVOTHYROXINE\LEVOTHYROXINE SODIUM
     Indication: Hypothyroidism
     Dosage: 50 ?G, ONCE DAILY, (QD)
     Route: 065

REACTIONS (2)
  - Infection [Unknown]
  - Cystitis [Unknown]
